FAERS Safety Report 10381298 (Version 2)
Quarter: 2014Q4

REPORT INFORMATION
  Report Type: Spontaneous
  Country: NL (occurrence: NL)
  Receive Date: 20140813
  Receipt Date: 20141113
  Transmission Date: 20150528
  Serious: Yes (Other)
  Sender: FDA-Public Use
  Company Number: NL-SA-2014SA108548

PATIENT
  Age: 58 Year
  Sex: Male

DRUGS (1)
  1. TUBERTEST [Suspect]
     Active Substance: TUBERCULIN PURIFIED PROTEIN DERIVATIVE
     Indication: TUBERCULIN TEST
     Route: 065
     Dates: start: 20140801, end: 20140801

REACTIONS (2)
  - Condition aggravated [Unknown]
  - Colitis ulcerative [Unknown]
